FAERS Safety Report 26204392 (Version 1)
Quarter: 2025Q4

REPORT INFORMATION
  Report Type: Spontaneous
  Country: EU (occurrence: EU)
  Receive Date: 20251226
  Receipt Date: 20251226
  Transmission Date: 20260117
  Serious: Yes (Other)
  Sender: FRESENIUS KABI
  Company Number: None

PATIENT
  Age: 64 Year
  Sex: Male

DRUGS (2)
  1. PEMETREXED [Suspect]
     Active Substance: PEMETREXED
     Indication: Lung adenocarcinoma
  2. PEMBROLIZUMAB [Concomitant]
     Active Substance: PEMBROLIZUMAB
     Indication: Product used for unknown indication

REACTIONS (6)
  - Rash [Unknown]
  - Periorbital swelling [Unknown]
  - Joint swelling [Unknown]
  - Fatigue [Unknown]
  - Renal disorder [Unknown]
  - N-terminal prohormone brain natriuretic peptide increased [Unknown]

NARRATIVE: CASE EVENT DATE: 20250101
